FAERS Safety Report 19467851 (Version 1)
Quarter: 2021Q2

REPORT INFORMATION
  Report Type: Spontaneous
  Country: DK (occurrence: DK)
  Receive Date: 20210628
  Receipt Date: 20210628
  Transmission Date: 20210717
  Serious: Yes (Life-Threatening, Hospitalization, Disabling)
  Sender: FDA-Public Use
  Company Number: NVSC2021DK143767

PATIENT
  Age: 81 Year
  Sex: Male
  Weight: 64 kg

DRUGS (8)
  1. METFORMIN [Suspect]
     Active Substance: METFORMIN HYDROCHLORIDE
     Indication: TYPE 2 DIABETES MELLITUS
     Dosage: 2000 MG, QD
     Route: 048
     Dates: start: 20170308, end: 20210510
  2. CITALOPRAM [Concomitant]
     Active Substance: CITALOPRAM HYDROBROMIDE
     Indication: DEPRESSION
     Dosage: 20 MG, QD
     Route: 048
     Dates: start: 20141218
  3. FORXIGA [Interacting]
     Active Substance: DAPAGLIFLOZIN
     Indication: TYPE 2 DIABETES MELLITUS
     Dosage: 10 MG, QD
     Route: 048
     Dates: start: 20181213, end: 20210510
  4. VIBEDEN [Concomitant]
     Active Substance: HYDROXOCOBALAMIN
     Indication: VITAMIN B12 DEFICIENCY
     Dosage: UNK(INJECTION AT GENERAL PRACTITIONER)
     Route: 030
     Dates: start: 20170119
  5. PANODIL [Concomitant]
     Active Substance: ACETAMINOPHEN
     Indication: TRISMUS
     Dosage: 4000 MG, QD, AT SURGERY WITH RISK OF SWELLING AND TRISMUS
     Route: 048
     Dates: start: 20180601
  6. ALFUZOSIN SANDOZ [Concomitant]
     Active Substance: ALFUZOSIN
     Indication: DYSURIA
     Dosage: 10 MG, QD
     Route: 048
     Dates: start: 20141121, end: 20200204
  7. CLOPIDOGREL [Concomitant]
     Active Substance: CLOPIDOGREL BISULFATE
     Indication: THROMBOSIS PROPHYLAXIS
     Dosage: 75 MG, QD
     Route: 048
     Dates: start: 20150924
  8. ATORVASTATIN TEVA [Concomitant]
     Active Substance: ATORVASTATIN
     Indication: HYPERCHOLESTEROLAEMIA
     Dosage: 40 MG, QD
     Route: 048
     Dates: start: 20150925

REACTIONS (4)
  - Weight decreased [Recovered/Resolved]
  - Vomiting [Recovered/Resolved]
  - Drug interaction [Recovered/Resolved]
  - Diarrhoea [Recovered/Resolved]

NARRATIVE: CASE EVENT DATE: 20190702
